FAERS Safety Report 8377008-7 (Version None)
Quarter: 2012Q2

REPORT INFORMATION
  Report Type: 
  Country: None (occurrence: None)
  Receive Date: 20120522
  Receipt Date: 20120514
  Transmission Date: 20120825
  Serious: Yes (Death)
  Sender: FDA-Public Use
  Company Number: DO-ROCHE-1069801

PATIENT
  Sex: Female

DRUGS (2)
  1. BONIVA [Suspect]
     Indication: OSTEOPOROSIS
     Route: 042
     Dates: start: 20120221, end: 20120509
  2. AMLODIPINE BESYLATE [Concomitant]
     Indication: HYPERTENSION

REACTIONS (2)
  - PULMONARY OEDEMA [None]
  - CEREBRAL THROMBOSIS [None]
